FAERS Safety Report 5100806-X (Version None)
Quarter: 2006Q3

REPORT INFORMATION
  Report Type: 
  Country: None (occurrence: None)
  Receive Date: 20060731
  Receipt Date: 20060616
  Transmission Date: 20061208
  Serious: No
  Sender: FDA-Public Use
  Company Number: 2006PV015771

PATIENT
  Age: 59 Year
  Sex: Male
  Weight: 133.3575 kg

DRUGS (7)
  1. BYETTA [Suspect]
     Indication: DIABETES MELLITUS NON-INSULIN-DEPENDENT
     Dosage: 5 + 10 MCG; BID; SC - SEE IMAGE
     Route: 058
     Dates: start: 20060101, end: 20060101
  2. COREG [Suspect]
     Indication: DRUG USE FOR UNKNOWN INDICATION
  3. COZAAR [Suspect]
     Indication: DRUG USE FOR UNKNOWN INDICATION
  4. METFORMIN HCL [Concomitant]
  5. AVANDIA [Concomitant]
  6. ZYLOPRIM [Concomitant]
  7. ZOCOR [Concomitant]

REACTIONS (2)
  - ECZEMA [None]
  - ORAL LICHEN PLANUS [None]
